FAERS Safety Report 10310864 (Version 4)
Quarter: 2014Q3

REPORT INFORMATION
  Report Type: Spontaneous
  Country: FR (occurrence: None)
  Receive Date: 20140714
  Receipt Date: 20140902
  Transmission Date: 20150326
  Serious: Yes (Disabling, Other)
  Sender: FDA-Public Use
  Company Number: NGX_02399_2014

PATIENT
  Sex: Female

DRUGS (1)
  1. QUTENZA [Suspect]
     Active Substance: CAPSAICIN
     Indication: OCCUPATIONAL EXPOSURE TO PRODUCT
     Dosage: (4 DF QD,CUTANEOUS PATCH,  2 DAYS PER WEEK])
     Dates: start: 2011

REACTIONS (8)
  - Dyspnoea [None]
  - Respiratory disorder [None]
  - Accidental exposure to product [None]
  - Dysgeusia [None]
  - Lung hyperinflation [None]
  - House dust allergy [None]
  - Eye pruritus [None]
  - Occupational exposure to product [None]

NARRATIVE: CASE EVENT DATE: 2011
